FAERS Safety Report 5339659-3 (Version None)
Quarter: 2007Q2

REPORT INFORMATION
  Report Type: 
  Country: None (occurrence: None)
  Receive Date: 20070525
  Receipt Date: 20070511
  Transmission Date: 20071010
  Serious: Yes (Death)
  Sender: FDA-Public Use
  Company Number: T200700176

PATIENT
  Age: 29 Year
  Sex: Female
  Weight: 59.648 kg

DRUGS (6)
  1. OPTIRAY 160 [Suspect]
     Indication: COMPUTERISED TOMOGRAM ABDOMEN
     Dosage: 100 ML, SINGLE, INTRAVENOUS
     Route: 042
     Dates: start: 20060605, end: 20060605
  2. ROCEPHIN [Suspect]
     Indication: ABDOMINAL PAIN LOWER
     Dosage: 1 G, SINGLE, INTRAVENOUS
     Route: 042
     Dates: start: 20060605, end: 20060605
  3. LEVAQUIN [Suspect]
     Indication: ABDOMINAL PAIN LOWER
     Dosage: 750 MG, SINGLE, INTRAVENOUS
     Route: 042
     Dates: start: 20060605, end: 20060605
  4. SODIUM CHLORIDE [Concomitant]
  5. DEMEROL [Concomitant]
  6. PHENERGAN /00033001/(PROMETHAZINE) [Concomitant]

REACTIONS (28)
  - ANAPHYLACTIC REACTION [None]
  - ASTHMA [None]
  - ATELECTASIS [None]
  - BASOPHIL PERCENTAGE INCREASED [None]
  - BLOOD PH DECREASED [None]
  - BLOOD PRESSURE SYSTOLIC INCREASED [None]
  - CARDIAC ARREST [None]
  - CHEST DISCOMFORT [None]
  - CHOLECYSTITIS CHRONIC [None]
  - CONDITION AGGRAVATED [None]
  - CYANOSIS [None]
  - ELECTROMECHANICAL DISSOCIATION [None]
  - GALLBLADDER DISORDER [None]
  - HEART RATE INCREASED [None]
  - LOCAL SWELLING [None]
  - LUNG INFILTRATION [None]
  - NEUTROPHIL PERCENTAGE INCREASED [None]
  - OEDEMA [None]
  - PCO2 INCREASED [None]
  - PO2 DECREASED [None]
  - PULMONARY OEDEMA [None]
  - RESPIRATORY ARREST [None]
  - RESPIRATORY RATE INCREASED [None]
  - SPLENIC GRANULOMA [None]
  - SWOLLEN TONGUE [None]
  - URTICARIA [None]
  - VENTRICULAR FIBRILLATION [None]
  - WHITE BLOOD CELL COUNT INCREASED [None]
